FAERS Safety Report 4705422-7 (Version None)
Quarter: 2005Q3

REPORT INFORMATION
  Report Type: 
  Country: None (occurrence: None)
  Receive Date: 20050701
  Receipt Date: 20050512
  Transmission Date: 20060218
  Serious: Yes (Other)
  Sender: FDA-Public Use
  Company Number: SE-GLAXOSMITHKLINE-B0381358A

PATIENT
  Sex: Female

DRUGS (2)
  1. LAMICTAL [Suspect]
     Indication: BIPOLAR DISORDER
     Dosage: 200MG PER DAY
     Route: 065
     Dates: start: 20041201
  2. ANTIHYPERTENSIVE (UNSPECIFIED) [Concomitant]

REACTIONS (1)
  - HYPERGLYCAEMIA [None]
